FAERS Safety Report 8608534-0 (Version None)
Quarter: 2012Q3

REPORT INFORMATION
  Report Type: 
  Country: None (occurrence: None)
  Receive Date: 20120806
  Receipt Date: 20120727
  Transmission Date: 20120928
  Serious: Yes (Other)
  Sender: FDA-Public Use
  Company Number: DSA_58800_2012

PATIENT
  Age: 64 Year
  Sex: Male

DRUGS (3)
  1. CO-AMOXICLAV /00756801/ [Concomitant]
  2. METRONIDAZOLE [Suspect]
     Indication: ANTIBIOTIC PROPHYLAXIS
     Dosage: (DF), (DF (THREE TIMES DAILY))
     Dates: start: 20120629, end: 20120630
  3. CEFUROXIME [Suspect]
     Indication: ANTIBIOTIC PROPHYLAXIS
     Dosage: (DF)

REACTIONS (1)
  - RENAL FAILURE ACUTE [None]
